FAERS Safety Report 22002781 (Version 1)
Quarter: 2023Q1

REPORT INFORMATION
  Report Type: Report from Study
  Country: US (occurrence: US)
  Receive Date: 20230217
  Receipt Date: 20230217
  Transmission Date: 20230417
  Serious: Yes (Other)
  Sender: FDA-Public Use
  Company Number: US-ABBVIE-4309476

PATIENT
  Age: 45 Year
  Sex: Female

DRUGS (1)
  1. HUMIRA [Suspect]
     Active Substance: ADALIMUMAB
     Indication: Psoriasis
     Route: 058
     Dates: start: 20220619, end: 20230207

REACTIONS (3)
  - Tonsillectomy [Not Recovered/Not Resolved]
  - Hand fracture [Unknown]
  - Blister [Unknown]

NARRATIVE: CASE EVENT DATE: 20230207
